FAERS Safety Report 9799074 (Version 1)
Quarter: 2014Q1

REPORT INFORMATION
  Report Type: Spontaneous
  Country: US (occurrence: None)
  Receive Date: 20140103
  Receipt Date: 20140103
  Transmission Date: 20141002
  Serious: Yes (Death, Life-Threatening)
  Sender: FDA-Public Use
  Company Number: None

PATIENT
  Age: 31 Year
  Sex: Male
  Weight: 92.53 kg

DRUGS (1)
  1. METHADONE [Suspect]
     Indication: DRUG DEPENDENCE
     Dosage: LIQUID
     Route: 048
     Dates: start: 20120626, end: 20120701

REACTIONS (5)
  - Lethargy [None]
  - Overdose [None]
  - Feeling cold [None]
  - Musculoskeletal stiffness [None]
  - Skin discolouration [None]
